FAERS Safety Report 7617617-3 (Version None)
Quarter: 2011Q3

REPORT INFORMATION
  Report Type: 
  Country: None (occurrence: None)
  Receive Date: 20110718
  Receipt Date: 20110706
  Transmission Date: 20111222
  Serious: Yes (Other)
  Sender: FDA-Public Use
  Company Number: CA-JNJFOC-20110412524

PATIENT
  Sex: Male
  Weight: 68.5 kg

DRUGS (3)
  1. ADALIMUMAB [Concomitant]
     Dates: start: 20090501
  2. ADALIMUMAB [Concomitant]
     Dates: start: 20101004
  3. INFLIXIMAB, RECOMBINANT [Suspect]
     Indication: PSORIASIS
     Route: 042
     Dates: start: 20030718, end: 20041001

REACTIONS (1)
  - PROSTATE CANCER [None]
